FAERS Safety Report 18209512 (Version 2)
Quarter: 2020Q3

REPORT INFORMATION
  Report Type: Report from Study
  Country: US (occurrence: US)
  Receive Date: 20200828
  Receipt Date: 20200917
  Transmission Date: 20201103
  Serious: Yes (Other)
  Sender: FDA-Public Use
  Company Number: US-TEVA-2020-US-1818320

PATIENT
  Age: 61 Year
  Sex: Female

DRUGS (2)
  1. COPAXONE [Suspect]
     Active Substance: GLATIRAMER ACETATE
     Dosage: FORM STRENGTH: UNKNOWN
     Route: 065
  2. COPAXONE [Suspect]
     Active Substance: GLATIRAMER ACETATE
     Dates: start: 202007

REACTIONS (15)
  - Vomiting [Recovering/Resolving]
  - Insomnia [Unknown]
  - Body temperature abnormal [Recovered/Resolved]
  - Influenza like illness [Unknown]
  - Pain [Recovered/Resolved]
  - Dyspnoea [Recovering/Resolving]
  - Pyrexia [Recovered/Resolved]
  - Dysphagia [Recovering/Resolving]
  - Thyroid cancer [Unknown]
  - Oropharyngeal discomfort [Recovering/Resolving]
  - Hyperhidrosis [Unknown]
  - Throat tightness [Recovering/Resolving]
  - Injection site pain [Recovering/Resolving]
  - Pruritus [Unknown]
  - Pharyngeal swelling [Recovering/Resolving]

NARRATIVE: CASE EVENT DATE: 2020
